FAERS Safety Report 8554826-3 (Version None)
Quarter: 2012Q3

REPORT INFORMATION
  Report Type: 
  Country: None (occurrence: None)
  Receive Date: 20120725
  Receipt Date: 20120725
  Transmission Date: 20120928
  Serious: Yes (Hospitalization)
  Sender: FDA-Public Use
  Company Number: None

PATIENT
  Sex: Female
  Weight: 79 kg

DRUGS (9)
  1. ONDANSETRON [Concomitant]
  2. CARBOPLATIN [Suspect]
     Dosage: 733 MG
  3. LORAZEPAM [Concomitant]
  4. DIPHENHYDRAMINE HCL [Concomitant]
  5. EFFEXOR [Concomitant]
  6. NEULASTA [Concomitant]
  7. TAXOL [Suspect]
     Dosage: 330 MG
  8. DEXAMETHASONE [Concomitant]
  9. FAMOTIDINE [Concomitant]

REACTIONS (3)
  - VOMITING [None]
  - ABDOMINAL PAIN [None]
  - NAUSEA [None]
